FAERS Safety Report 4990815-3 (Version None)
Quarter: 2006Q2

REPORT INFORMATION
  Report Type: 
  Country: None (occurrence: None)
  Receive Date: 20060427
  Receipt Date: 20050620
  Transmission Date: 20061013
  Serious: Yes (Other)
  Sender: FDA-Public Use
  Company Number: CEL-2005-00742-SLO

PATIENT
  Age: 11 Year
  Sex: Female
  Weight: 30.8 kg

DRUGS (2)
  1. METHYLPHENIDATE HCL [Suspect]
     Indication: ATTENTION DEFICIT/HYPERACTIVITY DISORDER
     Dosage: 15 MG 1/D PO
     Route: 048
     Dates: start: 20030801, end: 20050511
  2. MELATONIN [Concomitant]

REACTIONS (1)
  - HALLUCINATIONS, MIXED [None]
